FAERS Safety Report 25096562 (Version 1)
Quarter: 2025Q1

REPORT INFORMATION
  Report Type: Spontaneous
  Country: US (occurrence: US)
  Receive Date: 20250319
  Receipt Date: 20250319
  Transmission Date: 20250408
  Serious: No
  Sender: INSUD PHARMA
  Company Number: US-INSUD PHARMA-2503US01815

PATIENT

DRUGS (2)
  1. LORYNA [Suspect]
     Active Substance: DROSPIRENONE\ETHINYL ESTRADIOL
     Indication: Contraception
     Route: 048
     Dates: start: 20250220
  2. LORYNA [Suspect]
     Active Substance: DROSPIRENONE\ETHINYL ESTRADIOL
     Indication: Menstruation irregular

REACTIONS (3)
  - Heavy menstrual bleeding [Not Recovered/Not Resolved]
  - Mood swings [Not Recovered/Not Resolved]
  - Product use in unapproved indication [Unknown]

NARRATIVE: CASE EVENT DATE: 20250221
